FAERS Safety Report 4733989-1 (Version None)
Quarter: 2005Q3

REPORT INFORMATION
  Report Type: 
  Country: None (occurrence: None)
  Receive Date: 20050721
  Receipt Date: 20050511
  Transmission Date: 20060218
  Serious: No
  Sender: FDA-Public Use
  Company Number: 2005SP000694

PATIENT
  Age: 39 Year
  Sex: Female
  Weight: 48.9885 kg

DRUGS (3)
  1. LUNESTA [Suspect]
     Dosage: 2 MG, HS, ORAL; 3 MG, HS, ORAL
     Route: 048
     Dates: start: 20050504, end: 20050507
  2. LUNESTA [Suspect]
     Dosage: 2 MG, HS, ORAL; 3 MG, HS, ORAL
     Route: 048
     Dates: start: 20050508, end: 20050510
  3. LUNESTA [Suspect]

REACTIONS (2)
  - DRUG INEFFECTIVE [None]
  - INSOMNIA [None]
